FAERS Safety Report 19724417 (Version 1)
Quarter: 2021Q3

REPORT INFORMATION
  Report Type: Report from Study
  Country: US (occurrence: US)
  Receive Date: 20210819
  Receipt Date: 20210819
  Transmission Date: 20211014
  Serious: Yes (Hospitalization)
  Sender: FDA-Public Use
  Company Number: US-MYLANLABS-2021M1053847

PATIENT
  Age: 4 Decade
  Sex: Male

DRUGS (2)
  1. VANCOMYCIN [Suspect]
     Active Substance: VANCOMYCIN
     Indication: STAPHYLOCOCCAL BACTERAEMIA
     Dosage: UNK
  2. ORITAVANCIN. [Suspect]
     Active Substance: ORITAVANCIN
     Indication: STAPHYLOCOCCAL BACTERAEMIA
     Dosage: 1200 MILLIGRAM RECEIVED A SINGLE INFUSION

REACTIONS (1)
  - Treatment failure [Unknown]
